FAERS Safety Report 14892801 (Version 1)
Quarter: 2018Q2

REPORT INFORMATION
  Report Type: Report from Study
  Country: CA (occurrence: CA)
  Receive Date: 20180514
  Receipt Date: 20180514
  Transmission Date: 20180711
  Serious: Yes (Hospitalization, Other)
  Sender: FDA-Public Use
  Company Number: CA-GLAXOSMITHKLINE-CA2018GSK080203

PATIENT
  Age: 2 Day
  Sex: Male
  Weight: 3 kg

DRUGS (7)
  1. BUPROPION HYDROCHLORIDE. [Suspect]
     Active Substance: BUPROPION HYDROCHLORIDE
     Indication: DRUG DEPENDENCE
     Dosage: 12 MG, QD
     Route: 064
     Dates: start: 20170528
  2. TRAZODONE [Suspect]
     Active Substance: TRAZODONE HYDROCHLORIDE
     Indication: INSOMNIA
     Dosage: 100 MG, QD
     Dates: start: 20090906
  3. ZOFRAN [Suspect]
     Active Substance: ONDANSETRON HYDROCHLORIDE
     Indication: NAUSEA
     Dosage: 8 MG, PRN
     Route: 064
     Dates: start: 20170610
  4. BUPROPION HYDROCHLORIDE. [Suspect]
     Active Substance: BUPROPION HYDROCHLORIDE
     Indication: DEPRESSION
     Dosage: 12 MG, QD
     Route: 064
     Dates: start: 201704
  5. NICOTINE. [Suspect]
     Active Substance: NICOTINE
     Indication: DEPRESSION
     Dosage: UNK
     Route: 063
     Dates: start: 20180108
  6. BUPROPION HYDROCHLORIDE. [Suspect]
     Active Substance: BUPROPION HYDROCHLORIDE
     Dosage: 300 MG, QD
  7. NICOTINE. [Suspect]
     Active Substance: NICOTINE
     Indication: PRODUCT USED FOR UNKNOWN INDICATION
     Dosage: 15 DF, QD
     Route: 064
     Dates: start: 201704

REACTIONS (4)
  - Foetal exposure during pregnancy [Recovering/Resolving]
  - Poor feeding infant [Unknown]
  - Drug withdrawal syndrome neonatal [Recovering/Resolving]
  - Exposure via breast milk [Recovering/Resolving]

NARRATIVE: CASE EVENT DATE: 20180110
